FAERS Safety Report 10156032 (Version 1)
Quarter: 2014Q2

REPORT INFORMATION
  Report Type: Spontaneous
  Country: US (occurrence: US)
  Receive Date: 20140506
  Receipt Date: 20140506
  Transmission Date: 20141212
  Serious: Yes (Hospitalization, Other)
  Sender: FDA-Public Use
  Company Number: US-WATSON-2014-09005

PATIENT
  Age: 63 Year
  Sex: Male
  Weight: 109 kg

DRUGS (7)
  1. TESTOSTERONE CYPIONATE (WATSON LABORATORIES) [Suspect]
     Indication: HORMONE REPLACEMENT THERAPY
     Dosage: ONE ML EVERY OTHER WEEK
     Route: 065
  2. METOPROLOL [Concomitant]
     Indication: ATRIAL FIBRILLATION
     Dosage: UNK, BID
     Route: 065
     Dates: start: 2012
  3. TRAZODONE [Concomitant]
     Indication: INSOMNIA
     Dosage: UNK, PRN
     Route: 065
  4. INSULIN [Concomitant]
     Indication: DIABETES MELLITUS
     Dosage: 45 UNITS AT NIGHT, 35 UNITS IN MORNING
     Dates: start: 2013
  5. NOVOLOG [Concomitant]
     Indication: DIABETES MELLITUS
     Dosage: 10 U, TID
     Dates: start: 2013
  6. ASPIRIN [Concomitant]
     Indication: ATRIAL FIBRILLATION
     Dosage: 150 MG, DAILY
     Route: 065
  7. WARFARIN [Concomitant]
     Indication: ANTIPLATELET THERAPY
     Dosage: UNK, TID
     Route: 065
     Dates: start: 201403

REACTIONS (1)
  - Pulmonary embolism [Recovering/Resolving]
